FAERS Safety Report 6025239-3 (Version None)
Quarter: 2008Q4

REPORT INFORMATION
  Report Type: 
  Country: None (occurrence: None)
  Receive Date: 20081229
  Receipt Date: 20081229
  Transmission Date: 20090506
  Serious: No
  Sender: FDA-Public Use
  Company Number: None

PATIENT
  Age: 23 Year
  Sex: Male
  Weight: 104.3273 kg

DRUGS (1)
  1. PROPECIA [Suspect]
     Indication: ALOPECIA
     Dosage: 5MG
     Dates: start: 20060901, end: 20061116

REACTIONS (2)
  - LIBIDO DECREASED [None]
  - ORGASM ABNORMAL [None]
